FAERS Safety Report 23759931 (Version 7)
Quarter: 2025Q2

REPORT INFORMATION
  Report Type: Report from Study
  Country: CA (occurrence: CA)
  Receive Date: 20240419
  Receipt Date: 20250403
  Transmission Date: 20250716
  Serious: Yes (Hospitalization, Other)
  Sender: TAKEDA
  Company Number: CA-TAKEDA-2024TUS030857

PATIENT
  Age: 84 Year
  Sex: Male

DRUGS (18)
  1. HUMAN IMMUNOGLOBULIN G\HYALURONIDASE RECOMBINANT HUMAN [Suspect]
     Active Substance: HUMAN IMMUNOGLOBULIN G\HYALURONIDASE (HUMAN RECOMBINANT)
     Indication: Secondary immunodeficiency
     Dosage: 40 GRAM, Q4WEEKS
     Dates: start: 20240323
  2. HUMAN IMMUNOGLOBULIN G\HYALURONIDASE RECOMBINANT HUMAN [Suspect]
     Active Substance: HUMAN IMMUNOGLOBULIN G\HYALURONIDASE (HUMAN RECOMBINANT)
     Dosage: 40 GRAM, Q4WEEKS
  3. HUMAN IMMUNOGLOBULIN G\HYALURONIDASE RECOMBINANT HUMAN [Suspect]
     Active Substance: HUMAN IMMUNOGLOBULIN G\HYALURONIDASE (HUMAN RECOMBINANT)
     Dosage: UNK UNK, Q4WEEKS
  4. HUMAN IMMUNOGLOBULIN G\HYALURONIDASE RECOMBINANT HUMAN [Suspect]
     Active Substance: HUMAN IMMUNOGLOBULIN G\HYALURONIDASE (HUMAN RECOMBINANT)
     Dosage: 40 GRAM, Q4WEEKS
  5. HUMAN IMMUNOGLOBULIN G\HYALURONIDASE RECOMBINANT HUMAN [Suspect]
     Active Substance: HUMAN IMMUNOGLOBULIN G\HYALURONIDASE (HUMAN RECOMBINANT)
     Dosage: 40 GRAM, Q4WEEKS
  6. DEXAMETHASONE [Concomitant]
     Active Substance: DEXAMETHASONE
  7. EPREX [Concomitant]
     Active Substance: ERYTHROPOIETIN
  8. MONTELUKAST [Concomitant]
     Active Substance: MONTELUKAST
  9. REVLIMID [Concomitant]
     Active Substance: LENALIDOMIDE
  10. METOPROLOL [Concomitant]
     Active Substance: METOPROLOL
  11. ROSUVASTATIN [Concomitant]
     Active Substance: ROSUVASTATIN
  12. VITAMIN B12 [Concomitant]
     Active Substance: CYANOCOBALAMIN
  13. RABEPRAZOLE [Concomitant]
     Active Substance: RABEPRAZOLE
  14. FERROUS FUMARATE [Concomitant]
     Active Substance: FERROUS FUMARATE
  15. MAGNESIUM [Concomitant]
     Active Substance: MAGNESIUM
  16. FUROSEMIDE [Concomitant]
     Active Substance: FUROSEMIDE
  17. APIXABAN [Concomitant]
     Active Substance: APIXABAN
  18. ACYCLOVIR [Concomitant]
     Active Substance: ACYCLOVIR

REACTIONS (12)
  - Lower respiratory tract infection [Unknown]
  - Cardiac fibrillation [Unknown]
  - Pneumonia [Not Recovered/Not Resolved]
  - Kidney infection [Unknown]
  - Skin lesion [Unknown]
  - Incorrect dose administered [Unknown]
  - Inappropriate schedule of product administration [Unknown]
  - Infusion site vesicles [Unknown]
  - Device infusion issue [Unknown]
  - Blood pressure increased [Unknown]
  - Chills [Unknown]
  - Infusion site erythema [Unknown]

NARRATIVE: CASE EVENT DATE: 20240301
